FAERS Safety Report 23681820 (Version 1)
Quarter: 2024Q1

REPORT INFORMATION
  Report Type: Spontaneous
  Country: DE (occurrence: DE)
  Receive Date: 20240328
  Receipt Date: 20240328
  Transmission Date: 20240410
  Serious: Yes (Other)
  Sender: FDA-Public Use
  Company Number: DE-MYLANLABS-2024M1027879

PATIENT
  Age: 57 Year
  Sex: Male

DRUGS (12)
  1. EVEROLIMUS [Suspect]
     Active Substance: EVEROLIMUS
     Indication: Hodgkin^s disease nodular sclerosis stage III
     Dosage: 15 MILLIGRAM, ON DAY 1-28 IN A 28 DAYS CYCLE
     Route: 048
     Dates: start: 202208, end: 202305
  2. PREDNISOLONE [Suspect]
     Active Substance: PREDNISOLONE
     Indication: Hodgkin^s disease nodular sclerosis stage III
     Dosage: UNK, CYCLE, RECEIVED 5 CYCLES.PART OF BEACOPP REGIMEN
     Route: 065
  3. BLEOMYCIN [Suspect]
     Active Substance: BLEOMYCIN SULFATE
     Indication: Hodgkin^s disease nodular sclerosis stage III
     Dosage: UNK, CYCLE, RECEIVED 5 CYCLES. PART OF BEACOPP REGIMEN
     Route: 065
  4. ETOPOSIDE [Suspect]
     Active Substance: ETOPOSIDE
     Indication: Hodgkin^s disease nodular sclerosis stage III
     Dosage: UNK, CYCLE, RECEIVED 5 CYCLES. PART OF BEACOPP REGIMEN
     Route: 065
  5. ADRIAMYCIN [Suspect]
     Active Substance: DOXORUBICIN HYDROCHLORIDE
     Indication: Hodgkin^s disease nodular sclerosis stage III
     Dosage: UNK, CYCLE, RECEIVED 5 CYCLES. PART OF BEACOPP REGIMEN
     Route: 065
  6. CYCLOPHOSPHAMIDE [Suspect]
     Active Substance: CYCLOPHOSPHAMIDE
     Indication: Hodgkin^s disease nodular sclerosis stage III
     Dosage: UNK, CYCLE, RECEIVED 5 CYCLES.PART OF BEACOPP REGIMEN
     Route: 065
  7. VINCRISTINE [Suspect]
     Active Substance: VINCRISTINE
     Indication: Hodgkin^s disease nodular sclerosis stage III
     Dosage: UNK, CYCLE, RECEIVED 5 CYCLES.PART OF BEACOPP REGIMEN
     Route: 065
  8. PROCARBAZINE [Suspect]
     Active Substance: PROCARBAZINE
     Indication: Hodgkin^s disease nodular sclerosis stage III
     Dosage: UNK, CYCLE, RECEIVED 5 CYCLES. PART OF BEACOPP REGIMEN
     Route: 065
  9. PIOGLITAZONE [Concomitant]
     Active Substance: PIOGLITAZONE
     Indication: Hodgkin^s disease nodular sclerosis stage III
     Dosage: 45 MILLIGRAM, ON DAY 1-28 IN A 28 DAYS CYCLE
     Route: 048
     Dates: start: 202208, end: 202305
  10. TREOSULFAN [Concomitant]
     Active Substance: TREOSULFAN
     Indication: Hodgkin^s disease nodular sclerosis stage III
     Dosage: 250 MILLIGRAM, ON DAY 1-28 IN A 28 DAYS CYCLE
     Route: 048
     Dates: start: 202208, end: 202305
  11. ETORICOXIB [Concomitant]
     Active Substance: ETORICOXIB
     Indication: Hodgkin^s disease nodular sclerosis stage III
     Dosage: 60 MILLIGRAM, ON DAY 1-28 IN A 28 DAYS CYCLE
     Route: 048
     Dates: start: 202208, end: 202305
  12. DEXAMETHASONE [Concomitant]
     Active Substance: DEXAMETHASONE
     Indication: Hodgkin^s disease nodular sclerosis stage III
     Dosage: 0.5 MILLIGRAM, ON DAY 1-28 IN A 28 DAYS CYCLE
     Route: 048
     Dates: start: 202208, end: 202305

REACTIONS (3)
  - Pneumonitis chemical [Recovered/Resolved]
  - Pneumonia [Recovered/Resolved]
  - Urinary tract infection [Recovered/Resolved]

NARRATIVE: CASE EVENT DATE: 20230501
